FAERS Safety Report 7770885-X (Version None)
Quarter: 2011Q3

REPORT INFORMATION
  Report Type: 
  Country: None (occurrence: None)
  Receive Date: 20110922
  Receipt Date: 20100802
  Transmission Date: 20111222
  Serious: Yes (Other)
  Sender: FDA-Public Use
  Company Number: US-ASTRAZENECA-2007UW18976

PATIENT
  Age: 9217 Day
  Sex: Male
  Weight: 90.7 kg

DRUGS (18)
  1. OXYCONTIN [Concomitant]
     Dosage: 10-80 MG
     Dates: start: 20030225
  2. DIAZEPAM [Concomitant]
     Dosage: 5-10 MG
     Dates: start: 20030630
  3. BUPROPION HCL [Concomitant]
     Dates: start: 20040610
  4. AMBIEN [Concomitant]
     Dates: start: 20040729
  5. DEPAKOTE ER [Concomitant]
     Dates: start: 20041122
  6. DEPAKOTE ER [Concomitant]
     Dates: start: 20040101, end: 20050101
  7. SEROQUEL [Suspect]
     Route: 048
     Dates: start: 20040610
  8. PERCOCET [Concomitant]
     Dosage: 7.5/325 MG
     Dates: start: 20030919
  9. NAPROXEN [Concomitant]
     Dates: start: 20030503
  10. METRONIDAZOLE [Concomitant]
     Dates: start: 20030426
  11. CHLORHEXIDINE GLUCONATE [Concomitant]
     Dosage: 0.12 %
     Dates: start: 20030426
  12. BUPROPION HCL [Concomitant]
     Dates: start: 20040603
  13. ALPRAZOLAM [Concomitant]
     Dates: start: 20041108
  14. BIAXIN XL [Concomitant]
     Dates: start: 20031015
  15. SEROQUEL [Suspect]
     Indication: DEPRESSION
     Route: 048
     Dates: start: 20030101, end: 20050701
  16. HYDROCODONE BITARTRATE AND ACETAMINOPHEN [Concomitant]
     Dosage: 5/500
     Dates: start: 20011227
  17. DILAUDID [Concomitant]
     Dates: start: 20030507
  18. DIPHENHYDRAMINE HCL [Concomitant]
     Dates: start: 20030604

REACTIONS (3)
  - HYPERGLYCAEMIC HYPEROSMOLAR NONKETOTIC SYNDROME [None]
  - TYPE 2 DIABETES MELLITUS [None]
  - NEUROGENIC BLADDER [None]
